FAERS Safety Report 18536664 (Version 2)
Quarter: 2022Q2

REPORT INFORMATION
  Report Type: Report from Study
  Country: None (occurrence: US)
  Receive Date: 20201123
  Receipt Date: 20220413
  Transmission Date: 20220721
  Serious: Yes (Hospitalization)
  Sender: FDA-Public Use
  Company Number: US-AKCEA THERAPEUTICS-2020IS001584

PATIENT
  Age: 76 Year
  Sex: Male

DRUGS (2)
  1. TEGSEDI [Suspect]
     Active Substance: INOTERSEN SODIUM
     Indication: Hereditary neuropathic amyloidosis
     Route: 058
  2. DEVICE [Suspect]
     Active Substance: DEVICE

REACTIONS (3)
  - Spinal fusion surgery [Unknown]
  - Malaise [Unknown]
  - Bedridden [Unknown]

NARRATIVE: CASE EVENT DATE: 20201105
